FAERS Safety Report 6666875-0 (Version None)
Quarter: 2010Q2

REPORT INFORMATION
  Report Type: 
  Country: None (occurrence: None)
  Receive Date: 20100405
  Receipt Date: 20100323
  Transmission Date: 20101027
  Serious: Yes (Other)
  Sender: FDA-Public Use
  Company Number: US-JNJFOC-20090804256

PATIENT
  Sex: Male
  Weight: 90.72 kg

DRUGS (2)
  1. LEVAQUIN [Suspect]
     Indication: SINUSITIS
  2. METHYLPREDNISOLONE [Suspect]
     Indication: SINUSITIS
     Route: 065

REACTIONS (5)
  - JOINT DISLOCATION [None]
  - RADIUS FRACTURE [None]
  - TENDON RUPTURE [None]
  - TENDONITIS [None]
  - UPPER LIMB FRACTURE [None]
